FAERS Safety Report 8401759-9 (Version None)
Quarter: 2012Q2

REPORT INFORMATION
  Report Type: 
  Country: None (occurrence: None)
  Receive Date: 20120601
  Receipt Date: 20120524
  Transmission Date: 20120825
  Serious: Yes (Hospitalization, Other)
  Sender: FDA-Public Use
  Company Number: US-BAYER-2011-076135

PATIENT
  Age: 21 Year
  Sex: Female
  Weight: 58.957 kg

DRUGS (9)
  1. HYDROCODONE BITARTRATE AND ACETAMINOPHEN [Concomitant]
     Dosage: 5-500 MG
     Dates: start: 20091213
  2. YAZ [Suspect]
     Indication: CONTRACEPTION
     Dosage: UNK
     Dates: start: 20080401, end: 20090301
  3. LOESTRIN 1.5/30 [Concomitant]
  4. ALBUTEROL SULFATE [Concomitant]
     Dosage: 108 ?G, 2 PUFFS QID AS NEEDED
     Route: 045
     Dates: start: 20091022
  5. PROPOXYPHENE +#8211;APAP [Concomitant]
     Dosage: 100-650 MG
     Dates: start: 20091130
  6. FLONASE [Concomitant]
     Dosage: 50 ?G, DAILY
     Route: 045
     Dates: start: 20091022
  7. CIPROFLOXACIN [Concomitant]
     Dosage: 500 MG, UNK
     Dates: start: 20091022, end: 20091213
  8. IBUPROFEN [Concomitant]
     Dosage: 800 MG, TID
     Route: 048
     Dates: start: 20091022
  9. FIORICET [Concomitant]
     Dosage: 50-325-40 MG EVERY 8 HOURS
     Route: 048
     Dates: start: 20091022

REACTIONS (8)
  - GALLBLADDER DISORDER [None]
  - PAIN [None]
  - INJURY [None]
  - PULMONARY EMBOLISM [None]
  - CHOLECYSTITIS CHRONIC [None]
  - DEEP VEIN THROMBOSIS [None]
  - MYOCARDIAL INFARCTION [None]
  - CEREBROVASCULAR ACCIDENT [None]
